FAERS Safety Report 18118361 (Version 1)
Quarter: 2020Q3

REPORT INFORMATION
  Report Type: Spontaneous
  Country: US (occurrence: US)
  Receive Date: 20200806
  Receipt Date: 20200806
  Transmission Date: 20201103
  Serious: Yes (Hospitalization)
  Sender: FDA-Public Use
  Company Number: US-MYLANLABS-2020M1069445

PATIENT
  Age: 42 Year
  Sex: Female

DRUGS (2)
  1. LIDOCAINE. [Concomitant]
     Active Substance: LIDOCAINE
     Indication: PAIN MANAGEMENT
     Dosage: RECEIVED AT C 6?7 AND L 4?5 EPIDURAL INJECTION LIDOCAINE?BETAMETHASONE 8MG
     Route: 008
  2. BETAMETHASONE. [Suspect]
     Active Substance: BETAMETHASONE
     Indication: PAIN MANAGEMENT
     Dosage: RECEIVED AT C 6?7 AND L 4?5 EPIDURAL INJECTION LIDOCAINE?BETAMETHASONE 8MG
     Route: 008

REACTIONS (2)
  - Electrocardiogram T wave amplitude decreased [Recovered/Resolved]
  - Familial periodic paralysis [Recovered/Resolved]
